FAERS Safety Report 8867164 (Version 1)
Quarter: 2012Q4

REPORT INFORMATION
  Report Type: 
  Country: US (occurrence: US)
  Receive Date: 20121025
  Receipt Date: 20121025
  Transmission Date: 20130627
  Serious: No
  Sender: FDA-Public Use
  Company Number: US-AMGEN-USASP2012014814

PATIENT
  Age: 55 Year
  Sex: Male
  Weight: 81.63 kg

DRUGS (5)
  1. ENBREL [Suspect]
     Indication: PRODUCT USED FOR UNKNOWN INDICATION
     Dosage: 25 mg, qwk
     Route: 058
  2. PREVACID [Concomitant]
     Dosage: 30 mg, UNK
  3. FLOMAX                             /00889901/ [Concomitant]
     Dosage: 0.4 mg, UNK
  4. PREDNISONE [Concomitant]
     Dosage: 10 mg, UNK
  5. KEFLEX                             /00145501/ [Concomitant]
     Dosage: 500 mg, UNK

REACTIONS (1)
  - Sinusitis [Recovering/Resolving]
